FAERS Safety Report 23793295 (Version 1)
Quarter: 2024Q2

REPORT INFORMATION
  Report Type: Spontaneous
  Country: JP (occurrence: None)
  Receive Date: 20240429
  Receipt Date: 20240429
  Transmission Date: 20240716
  Serious: Yes (Death)
  Sender: FDA-Public Use
  Company Number: 2024A098261

PATIENT
  Age: 90 Year

DRUGS (1)
  1. FASENRA [Suspect]
     Active Substance: BENRALIZUMAB
     Dosage: DOSE UNKNOWN
     Route: 058
     Dates: end: 202308

REACTIONS (1)
  - Brain stem haemorrhage [Fatal]
